FAERS Safety Report 10977464 (Version 1)
Quarter: 2015Q1

REPORT INFORMATION
  Report Type: Spontaneous
  Country: JP (occurrence: None)
  Receive Date: 20150330
  Receipt Date: 20150330
  Transmission Date: 20150721
  Serious: Yes (Hospitalization)
  Sender: FDA-Public Use
  Company Number: JP-20150071

PATIENT
  Age: 73 Year
  Sex: Male
  Weight: 60 kg

DRUGS (1)
  1. LIPIODOL ULTRA-FLUIDE [Suspect]
     Active Substance: ETHIODIZED OIL
     Indication: THERAPEUTIC EMBOLISATION
     Route: 013
     Dates: start: 2008, end: 2008

REACTIONS (6)
  - Diverticulitis [None]
  - Off label use [None]
  - Appendicitis [None]
  - Psoas abscess [None]
  - Product use issue [None]
  - Haemorrhagic diathesis [None]

NARRATIVE: CASE EVENT DATE: 2010
